FAERS Safety Report 12712385 (Version 1)
Quarter: 2016Q3

REPORT INFORMATION
  Report Type: Spontaneous
  Country: US (occurrence: US)
  Receive Date: 20160902
  Receipt Date: 20160902
  Transmission Date: 20161109
  Serious: Yes (Other)
  Sender: FDA-Public Use
  Company Number: US-PFIZER INC-2016414771

PATIENT
  Sex: Male

DRUGS (1)
  1. DEPO-TESTOSTERONE [Suspect]
     Active Substance: TESTOSTERONE CYPIONATE
     Indication: HORMONE REPLACEMENT THERAPY
     Dosage: UNK
     Dates: start: 20100816, end: 20140323

REACTIONS (4)
  - Cardiovascular disorder [Unknown]
  - Pelvic mass [Unknown]
  - Deep vein thrombosis [Unknown]
  - Vascular compression [Unknown]

NARRATIVE: CASE EVENT DATE: 20111020
